FAERS Safety Report 19222135 (Version 1)
Quarter: 2021Q2

REPORT INFORMATION
  Report Type: Spontaneous
  Country: US (occurrence: US)
  Receive Date: 20210505
  Receipt Date: 20210505
  Transmission Date: 20210717
  Serious: No
  Sender: FDA-Public Use
  Company Number: US-SUNOVION-2021SUN001557

PATIENT
  Age: 58 Year
  Sex: Female

DRUGS (1)
  1. KYNMOBI [Suspect]
     Active Substance: APOMORPHINE HYDROCHLORIDE
     Dosage: UNK
     Route: 060

REACTIONS (5)
  - Musculoskeletal stiffness [Unknown]
  - Muscle spasms [Unknown]
  - Pain [Unknown]
  - Illness [Unknown]
  - Malaise [Unknown]
